FAERS Safety Report 8008724-4 (Version None)
Quarter: 2011Q4

REPORT INFORMATION
  Report Type: 
  Country: None (occurrence: None)
  Receive Date: 20111227
  Receipt Date: 20111221
  Transmission Date: 20120403
  Serious: No
  Sender: FDA-Public Use
  Company Number: JP-B.I. PHARMACEUTICALS,INC./RIDGEFIELD-2011-BP-24173NB

PATIENT
  Sex: Male
  Weight: 55.2 kg

DRUGS (8)
  1. FAMOTIDINE [Concomitant]
     Indication: BILE DUCT STONE
     Dosage: 20 MG
     Route: 048
     Dates: start: 20110928
  2. VITAMEDIN [Concomitant]
     Indication: BILE DUCT STONE
     Route: 042
     Dates: start: 20110928
  3. LANSOPRAZOLE [Concomitant]
     Indication: BILE DUCT STONE
     Dosage: 30 MG
     Route: 048
     Dates: start: 20110928
  4. URSO 250 [Concomitant]
     Indication: BILE DUCT STONE
     Dosage: 600 MG
     Route: 048
     Dates: start: 20110928
  5. SOLDEM 3A [Concomitant]
     Indication: BILE DUCT STONE
     Dosage: 500 ML
     Route: 042
     Dates: start: 20110928
  6. PRADAXA [Suspect]
     Indication: ATRIAL FIBRILLATION
     Dosage: 220 MG
     Route: 048
     Dates: start: 20111006, end: 20111012
  7. FOIPAN [Concomitant]
     Indication: BILE DUCT STONE
     Dosage: 600 MG
     Route: 048
     Dates: start: 20110928
  8. ALLOPURINOL [Concomitant]
     Indication: BILE DUCT STONE
     Dosage: 100 MG
     Route: 048
     Dates: start: 20110928

REACTIONS (1)
  - ACTIVATED PARTIAL THROMBOPLASTIN TIME PROLONGED [None]
